FAERS Safety Report 10185990 (Version 1)
Quarter: 2014Q2

REPORT INFORMATION
  Report Type: Spontaneous
  Country: RU (occurrence: RU)
  Receive Date: 20140521
  Receipt Date: 20140521
  Transmission Date: 20141212
  Serious: Yes (Other)
  Sender: FDA-Public Use
  Company Number: RU-PFIZER INC-2014134601

PATIENT
  Age: 60 Year
  Sex: Male

DRUGS (1)
  1. SUTENT [Suspect]
     Indication: METASTATIC RENAL CELL CARCINOMA
     Dosage: 50 MG, 1X/DAY, 4 WEEKS INTAKE, 2 WEEKS OFF
     Route: 048
     Dates: start: 201205, end: 201309

REACTIONS (3)
  - Pericarditis [Recovered/Resolved]
  - Rash papular [Recovered/Resolved]
  - Weight decreased [Not Recovered/Not Resolved]
